FAERS Safety Report 4348778-X (Version None)
Quarter: 2004Q1

REPORT INFORMATION
  Report Type: 
  Country: None (occurrence: None)
  Receive Date: 20040325
  Receipt Date: 20040216
  Transmission Date: 20041129
  Serious: No
  Sender: FDA-Public Use
  Company Number: USA040259448

PATIENT
  Age: 66 Year
  Sex: Female
  Weight: 55 kg

DRUGS (3)
  1. FORTEO [Suspect]
     Indication: BONE DISORDER
     Dosage: 20 UG/1 DAY
     Dates: start: 20030801
  2. LEVOXYL [Concomitant]
  3. CELEXA [Concomitant]

REACTIONS (2)
  - ERYTHEMA [None]
  - FREQUENT BOWEL MOVEMENTS [None]
